FAERS Safety Report 5979029-8 (Version None)
Quarter: 2008Q4

REPORT INFORMATION
  Report Type: 
  Country: None (occurrence: None)
  Receive Date: 20081204
  Receipt Date: 20080520
  Transmission Date: 20090506
  Serious: No
  Sender: FDA-Public Use
  Company Number: US-ABBOTT-08P-163-0455492-00

PATIENT
  Age: 48 Year
  Sex: Male

DRUGS (2)
  1. TRICOR [Suspect]
     Indication: BLOOD TRIGLYCERIDES INCREASED
  2. METAMUCIL [Concomitant]
     Indication: DYSPEPSIA

REACTIONS (4)
  - CONSTIPATION [None]
  - DIARRHOEA [None]
  - FLATULENCE [None]
  - GASTROINTESTINAL PAIN [None]
